FAERS Safety Report 23628229 (Version 1)
Quarter: 2024Q1

REPORT INFORMATION
  Report Type: Spontaneous
  Country: NL (occurrence: NL)
  Receive Date: 20240313
  Receipt Date: 20240313
  Transmission Date: 20240410
  Serious: Yes (Other)
  Sender: FDA-Public Use
  Company Number: None

PATIENT
  Age: 64 Year
  Sex: Female
  Weight: 75 kg

DRUGS (2)
  1. FLUTICASONE PROPIONATE\SALMETEROL XINAFOATE [Suspect]
     Active Substance: FLUTICASONE PROPIONATE\SALMETEROL XINAFOATE
     Indication: Asthma
     Dosage: AEROSOL, 25/250 ?G/DOSIS (MICROGRAM PER DOSIS), SALMETEROL/FLUTICASON  25/250UG/DO / BRAND NAME N...
     Route: 065
     Dates: start: 20240115
  2. ALBUTEROL [Concomitant]
     Active Substance: ALBUTEROL
     Indication: Product used for unknown indication
     Dosage: 250, SALBUTAMOL 200UG/DO / VENTOLIN DISKUS INHPDR 200MCG 60DO
     Route: 065

REACTIONS (4)
  - Arthralgia [Recovering/Resolving]
  - Urticaria [Recovering/Resolving]
  - Oral pain [Recovering/Resolving]
  - Myalgia [Recovering/Resolving]
